FAERS Safety Report 9010129 (Version 4)
Quarter: 2013Q2

REPORT INFORMATION
  Report Type: Report from Study
  Country: CA (occurrence: CA)
  Receive Date: 20130110
  Receipt Date: 20130621
  Transmission Date: 20140414
  Serious: Yes (Other)
  Sender: FDA-Public Use
  Company Number: CA-JNJFOC-20130102097

PATIENT
  Sex: Female
  Weight: 66.23 kg

DRUGS (4)
  1. REMICADE [Suspect]
     Indication: CROHN^S DISEASE
     Route: 042
     Dates: start: 201202
  2. REMICADE [Suspect]
     Indication: CROHN^S DISEASE
     Dosage: DOSE: 5 VIALS; STARTED ON AN UNSPECIFIED DATE
     Route: 042
  3. REMICADE [Suspect]
     Indication: CROHN^S DISEASE
     Route: 042
  4. REMICADE [Suspect]
     Indication: CROHN^S DISEASE
     Route: 042
     Dates: start: 201012

REACTIONS (10)
  - Haemorrhage [Unknown]
  - Malaise [Unknown]
  - Asthenia [Unknown]
  - Decreased appetite [Unknown]
  - Nausea [Unknown]
  - Bedridden [Unknown]
  - Pyrexia [Unknown]
  - Mucous stools [Unknown]
  - Anorectal disorder [Unknown]
  - Weight decreased [Unknown]
